FAERS Safety Report 11112560 (Version 7)
Quarter: 2015Q3

REPORT INFORMATION
  Report Type: Spontaneous
  Country: US (occurrence: US)
  Receive Date: 20150514
  Receipt Date: 20150924
  Transmission Date: 20151125
  Serious: Yes (Death, Other)
  Sender: FDA-Public Use
  Company Number: US-ASTRAZENECA-2015SE42522

PATIENT
  Age: 928 Month
  Sex: Female
  Weight: 58.1 kg

DRUGS (29)
  1. ASPIRIN. [Concomitant]
     Active Substance: ASPIRIN
     Route: 048
  2. TRICOR [Concomitant]
     Active Substance: FENOFIBRATE
     Route: 048
     Dates: start: 20040225
  3. PROTONIX [Concomitant]
     Active Substance: PANTOPRAZOLE SODIUM
     Route: 048
     Dates: start: 20040226
  4. SUMYCIN [Concomitant]
     Active Substance: TETRACYCLINE
     Route: 048
     Dates: start: 20040225
  5. EFFEXOR [Concomitant]
     Active Substance: VENLAFAXINE HYDROCHLORIDE
     Route: 065
  6. ZOCOR [Concomitant]
     Active Substance: SIMVASTATIN
     Route: 048
     Dates: start: 20040225
  7. PRISTIQ EXTENDED RELEASE [Concomitant]
     Active Substance: DESVENLAFAXINE SUCCINATE
     Route: 048
     Dates: start: 20120629
  8. XANAX [Concomitant]
     Active Substance: ALPRAZOLAM
     Route: 048
     Dates: start: 20121024
  9. AMARYL [Concomitant]
     Active Substance: GLIMEPIRIDE
     Route: 048
     Dates: start: 20111121
  10. TYLENOL [Concomitant]
     Active Substance: ACETAMINOPHEN
     Route: 065
  11. FLAGYL [Concomitant]
     Active Substance: METRONIDAZOLE\METRONIDAZOLE HYDROCHLORIDE
     Route: 048
     Dates: start: 20040226
  12. ZOFRAN [Concomitant]
     Active Substance: ONDANSETRON HYDROCHLORIDE
     Route: 048
     Dates: start: 20120409
  13. BYETTA [Suspect]
     Active Substance: EXENATIDE
     Route: 065
  14. MOBIC [Concomitant]
     Active Substance: MELOXICAM
     Route: 048
  15. ZYPREXA [Concomitant]
     Active Substance: OLANZAPINE
     Route: 065
  16. PREMARIN [Concomitant]
     Active Substance: ESTROGENS, CONJUGATED
     Route: 065
  17. COLACE [Concomitant]
     Active Substance: DOCUSATE SODIUM
     Route: 065
  18. LOPID [Concomitant]
     Active Substance: GEMFIBROZIL
     Route: 048
     Dates: start: 20080521
  19. CELEXA [Concomitant]
     Active Substance: CITALOPRAM HYDROBROMIDE
     Route: 048
     Dates: start: 20120629
  20. VYTORIN [Concomitant]
     Active Substance: EZETIMIBE\SIMVASTATIN
     Dosage: 10-40 MG, DAILY
     Route: 048
     Dates: start: 20100824
  21. OXYCODONE HYDROCHLORIDE. [Concomitant]
     Active Substance: OXYCODONE HYDROCHLORIDE
     Route: 048
     Dates: start: 20121024
  22. SYNTHROID/LEVOTHYROXINE [Concomitant]
     Route: 048
     Dates: start: 20070109
  23. PAXIL CR [Concomitant]
     Active Substance: PAROXETINE HYDROCHLORIDE
     Route: 048
     Dates: start: 20030825
  24. ATIVAN [Concomitant]
     Active Substance: LORAZEPAM
     Route: 065
  25. TRILIPIX [Concomitant]
     Active Substance: FENOFIBRIC ACID
     Route: 048
     Dates: start: 20100319
  26. FLEXERIL [Concomitant]
     Active Substance: CYCLOBENZAPRINE HYDROCHLORIDE
     Route: 048
     Dates: start: 20070501
  27. GLUCOPHAGE [Concomitant]
     Active Substance: METFORMIN HYDROCHLORIDE
  28. HYDRODIURIL [Concomitant]
     Active Substance: HYDROCHLOROTHIAZIDE
     Route: 048
     Dates: start: 20040225
  29. FISH OIL [Concomitant]
     Active Substance: FISH OIL
     Route: 048
     Dates: start: 20081112

REACTIONS (9)
  - Gastrointestinal carcinoma [Unknown]
  - Metastases to lung [Unknown]
  - Cervicitis cystic [Unknown]
  - Adenocarcinoma pancreas [Fatal]
  - Pancreatitis chronic [Unknown]
  - Pancreatic mass [Unknown]
  - Malignant ascites [Unknown]
  - Metastases to liver [Unknown]
  - Breast cancer [Unknown]

NARRATIVE: CASE EVENT DATE: 201202
